FAERS Safety Report 22080774 (Version 1)
Quarter: 2023Q1

REPORT INFORMATION
  Report Type: Spontaneous
  Country: GB (occurrence: GB)
  Receive Date: 20230309
  Receipt Date: 20230309
  Transmission Date: 20230417
  Serious: Yes (Disabling)
  Sender: FDA-Public Use
  Company Number: None

PATIENT
  Age: 43 Year
  Sex: Female
  Weight: 64.86 kg

DRUGS (2)
  1. CIPROFLOXACIN [Suspect]
     Active Substance: CIPROFLOXACIN
     Dosage: 1000 MG, QD
     Route: 048
     Dates: start: 20180310, end: 20180312
  2. MACROBID [Suspect]
     Active Substance: NITROFURANTOIN\NITROFURANTOIN MONOHYDRATE
     Indication: Urinary tract infection
     Dosage: 200 MG, QD
     Route: 048
     Dates: start: 20180304

REACTIONS (20)
  - Neuropathy peripheral [Not Recovered/Not Resolved]
  - Tendon disorder [Unknown]
  - Gait inability [Unknown]
  - Dysphagia [Unknown]
  - Fatigue [Not Recovered/Not Resolved]
  - Feeling abnormal [Not Recovered/Not Resolved]
  - Burning sensation [Unknown]
  - Gastrointestinal pain [Not Recovered/Not Resolved]
  - Food intolerance [Not Recovered/Not Resolved]
  - Drug intolerance [Not Recovered/Not Resolved]
  - Peripheral sensory neuropathy [Not Recovered/Not Resolved]
  - Palpitations [Unknown]
  - Facial paresis [Not Recovered/Not Resolved]
  - Ventricular extrasystoles [Unknown]
  - Tachycardia [Unknown]
  - Muscular weakness [Not Recovered/Not Resolved]
  - Oral discomfort [Not Recovered/Not Resolved]
  - Eye irritation [Not Recovered/Not Resolved]
  - Pain [Not Recovered/Not Resolved]
  - Arthralgia [Not Recovered/Not Resolved]

NARRATIVE: CASE EVENT DATE: 20180301
